FAERS Safety Report 6562409-X (Version None)
Quarter: 2010Q1

REPORT INFORMATION
  Report Type: 
  Country: None (occurrence: None)
  Receive Date: 20100130
  Receipt Date: 20091210
  Transmission Date: 20100710
  Serious: No
  Sender: FDA-Public Use
  Company Number: US-ABBOTT-09P-163-0608626-00

PATIENT
  Sex: Male

DRUGS (3)
  1. HUMIRA [Suspect]
     Indication: PSORIASIS
     Route: 058
     Dates: start: 20060401, end: 20091001
  2. HUMIRA [Suspect]
     Route: 058
     Dates: start: 20091107
  3. MULTI-VITAMIN [Concomitant]
     Indication: SUPPLEMENTATION THERAPY
     Route: 048

REACTIONS (7)
  - ALOPECIA [None]
  - GENITAL LESION [None]
  - MOUTH ULCERATION [None]
  - PAIN [None]
  - RASH MACULAR [None]
  - SKIN HYPERPIGMENTATION [None]
  - SYPHILIS [None]
